FAERS Safety Report 6819807-6 (Version None)
Quarter: 2010Q3

REPORT INFORMATION
  Report Type: 
  Country: None (occurrence: None)
  Receive Date: 20100707
  Receipt Date: 20100625
  Transmission Date: 20110219
  Serious: Yes (Hospitalization)
  Sender: FDA-Public Use
  Company Number: PHHY2010FR19810

PATIENT
  Age: 70 Year
  Sex: Female

DRUGS (1)
  1. RASILEZ [Suspect]
     Route: 048

REACTIONS (5)
  - DERMATITIS ALLERGIC [None]
  - MALAISE [None]
  - PRURITUS [None]
  - RASH [None]
  - SKIN INFECTION [None]
